FAERS Safety Report 6540565-7 (Version None)
Quarter: 2010Q1

REPORT INFORMATION
  Report Type: 
  Country: None (occurrence: None)
  Receive Date: 20100118
  Receipt Date: 20100109
  Transmission Date: 20100710
  Serious: Yes (Other)
  Sender: FDA-Public Use
  Company Number: US-TEVA-220222USA

PATIENT
  Sex: Female

DRUGS (2)
  1. PLAN B ONE-STEP [Suspect]
     Route: 048
  2. PLAN B ONE-STEP [Suspect]
     Route: 048

REACTIONS (1)
  - ABORTION SPONTANEOUS [None]
